FAERS Safety Report 18401808 (Version 1)
Quarter: 2020Q4

REPORT INFORMATION
  Report Type: Spontaneous
  Country: US (occurrence: US)
  Receive Date: 20201020
  Receipt Date: 20201020
  Transmission Date: 20210114
  Serious: No
  Sender: FDA-Public Use
  Company Number: US-BAUSCH-BL-2020-029566

PATIENT
  Age: 63 Year
  Sex: Female

DRUGS (1)
  1. ALTRENO [Suspect]
     Active Substance: TRETINOIN
     Indication: SKIN DISORDER
     Dosage: APPLY TOPICALLY TO AFFECTED AREA
     Route: 061
     Dates: start: 20200925, end: 20201009

REACTIONS (1)
  - Madarosis [Unknown]

NARRATIVE: CASE EVENT DATE: 202010
